FAERS Safety Report 7236422-3 (Version None)
Quarter: 2011Q1

REPORT INFORMATION
  Report Type: 
  Country: None (occurrence: None)
  Receive Date: 20110111
  Receipt Date: 20101228
  Transmission Date: 20110831
  Serious: Yes (Other)
  Sender: FDA-Public Use
  Company Number: FKO201000616

PATIENT
  Age: 56 Year
  Sex: Male

DRUGS (3)
  1. METHOTREXATE (MANUFACTURER UNKNOWN) (METHOTREXATE) (METHOTREXATE) [Suspect]
     Indication: NON-HODGKIN'S LYMPHOMA STAGE IV
     Dosage: (3000 MG/M2) INTRAVENOUS DRIP
     Route: 041
  2. CALCIUM FOLINATE (CALCIUM FOLINATE) (CALCIUM FOLINATE) [Concomitant]
  3. SODIUM BICARBONATE (SODIUM BICARBONATE) (SODIUM BICARBONATE) [Concomitant]

REACTIONS (7)
  - RENAL FAILURE ACUTE [None]
  - PYREXIA [None]
  - DRUG INTERACTION [None]
  - HYPERTENSION [None]
  - UREA RENAL CLEARANCE DECREASED [None]
  - ANAEMIA [None]
  - PH URINE DECREASED [None]
